FAERS Safety Report 16465241 (Version 3)
Quarter: 2019Q4

REPORT INFORMATION
  Report Type: Spontaneous
  Country: US (occurrence: US)
  Receive Date: 20190621
  Receipt Date: 20191107
  Transmission Date: 20200122
  Serious: Yes (Other)
  Sender: FDA-Public Use
  Company Number: US-MALLINCKRODT-T201904363

PATIENT
  Age: 72 Year
  Sex: Female

DRUGS (1)
  1. H.P. ACTHAR [Suspect]
     Active Substance: CORTICOTROPIN
     Indication: RHEUMATOID ARTHRITIS
     Dosage: 80 UNITS (1ML), TWO TIMES A WEEK AS DIRECTED
     Route: 058
     Dates: start: 201902

REACTIONS (5)
  - Sensitivity to weather change [Unknown]
  - Malaise [Unknown]
  - Rheumatoid arthritis [Unknown]
  - Fall [Unknown]
  - Product dose omission [Unknown]

NARRATIVE: CASE EVENT DATE: 2019
